FAERS Safety Report 18491495 (Version 2)
Quarter: 2021Q1

REPORT INFORMATION
  Report Type: Spontaneous
  Country: RU (occurrence: RU)
  Receive Date: 20201111
  Receipt Date: 20210111
  Transmission Date: 20210419
  Serious: Yes (Other)
  Sender: FDA-Public Use
  Company Number: RU-AMGEN-RUSSP2020179321

PATIENT
  Age: 46 Year
  Sex: Female

DRUGS (1)
  1. PROLIA [Suspect]
     Active Substance: DENOSUMAB
     Indication: BONE DENSITY DECREASED
     Dosage: 60 MILLIGRAM, Q6MO
     Route: 058
     Dates: end: 201612

REACTIONS (7)
  - Femoral neck fracture [Unknown]
  - Rib fracture [Unknown]
  - Pathological fracture [Unknown]
  - Rebound effect [Unknown]
  - Scapula fracture [Unknown]
  - Hypophosphataemic osteomalacia [Unknown]
  - Fall [Unknown]

NARRATIVE: CASE EVENT DATE: 201708
